FAERS Safety Report 8369709-1 (Version None)
Quarter: 2012Q1

REPORT INFORMATION
  Report Type: 
  Country: None (occurrence: None)
  Receive Date: 20120323
  Receipt Date: 20110310
  Transmission Date: 20120608
  Serious: Yes (Hospitalization)
  Sender: FDA-Public Use
  Company Number: 163-21880-11012305

PATIENT
  Age: 90 Year
  Sex: Female
  Weight: 76 kg

DRUGS (17)
  1. NORVASC [Concomitant]
  2. METHIMAZOLE [Concomitant]
  3. ALLOPURINOL [Concomitant]
  4. ALBUTEROL [Concomitant]
  5. LASIX [Concomitant]
  6. ASPIRIN [Concomitant]
  7. AMBIEN [Concomitant]
  8. DILAUDID [Concomitant]
  9. POTASSIUM CHLORIDE [Concomitant]
  10. NEURONTIN [Concomitant]
  11. PROPRANOLOL [Concomitant]
  12. REVLIMID [Suspect]
     Indication: MULTIPLE MYELOMA
     Dosage: 5 MG, DAILY X21 DAYS, PO; 5 MG, EVERY OTHER DAY, PO; 5 MG, DAILY, PO
     Route: 048
     Dates: start: 20101228, end: 20110206
  13. REVLIMID [Suspect]
     Indication: MULTIPLE MYELOMA
     Dosage: 5 MG, DAILY X21 DAYS, PO; 5 MG, EVERY OTHER DAY, PO; 5 MG, DAILY, PO
     Route: 048
     Dates: start: 20110221
  14. REVLIMID [Suspect]
     Indication: MULTIPLE MYELOMA
     Dosage: 5 MG, DAILY X21 DAYS, PO; 5 MG, EVERY OTHER DAY, PO; 5 MG, DAILY, PO
     Route: 048
     Dates: start: 20110206
  15. FLUCONAZOLE [Concomitant]
  16. COMPAZINE [Concomitant]
  17. PRILOSEC [Concomitant]

REACTIONS (4)
  - VOMITING [None]
  - CARDIAC FAILURE CONGESTIVE [None]
  - NAUSEA [None]
  - OEDEMA PERIPHERAL [None]
